FAERS Safety Report 20823863 (Version 1)
Quarter: 2022Q2

REPORT INFORMATION
  Report Type: Report from Study
  Country: HU (occurrence: HU)
  Receive Date: 20220513
  Receipt Date: 20220513
  Transmission Date: 20220721
  Serious: Yes (Hospitalization)
  Sender: FDA-Public Use
  Company Number: HU-NOVARTISPH-PHHO2019HU007659

PATIENT
  Age: 60 Year
  Sex: Male
  Weight: 135 kg

DRUGS (2)
  1. PLACEBO [Suspect]
     Active Substance: UNSPECIFIED INGREDIENT
     Indication: Axial spondyloarthritis
     Dosage: UNK
     Route: 058
     Dates: start: 20180509, end: 20190605
  2. PENTASA [Concomitant]
     Active Substance: MESALAMINE
     Indication: Colitis ulcerative
     Dosage: 2 G, TID
     Route: 065
     Dates: start: 2000

REACTIONS (1)
  - Skin disorder [Recovered/Resolved]

NARRATIVE: CASE EVENT DATE: 20190521
